FAERS Safety Report 8201988-3 (Version None)
Quarter: 2012Q1

REPORT INFORMATION
  Report Type: 
  Country: None (occurrence: None)
  Receive Date: 20120312
  Receipt Date: 20120308
  Transmission Date: 20120608
  Serious: Yes (Other)
  Sender: FDA-Public Use
  Company Number: PHEH2012US005408

PATIENT
  Sex: Male
  Weight: 129.25 kg

DRUGS (2)
  1. GILENYA [Suspect]
     Indication: RELAPSING-REMITTING MULTIPLE SCLEROSIS
     Dosage: 0.5 MG, QD
     Route: 048
     Dates: end: 20111101
  2. VITAMIN D [Concomitant]

REACTIONS (2)
  - HEPATIC CIRRHOSIS [None]
  - ALANINE AMINOTRANSFERASE INCREASED [None]
